FAERS Safety Report 9200739 (Version 1)
Quarter: 2013Q2

REPORT INFORMATION
  Report Type: Spontaneous
  Country: US (occurrence: US)
  Receive Date: 20130401
  Receipt Date: 20130401
  Transmission Date: 20140414
  Serious: No
  Sender: FDA-Public Use
  Company Number: US-009507513-1303USA014311

PATIENT
  Sex: Female

DRUGS (1)
  1. PEPCID [Suspect]

REACTIONS (2)
  - Depression [Unknown]
  - Wrong technique in drug usage process [Unknown]
